FAERS Safety Report 9649331 (Version 11)
Quarter: 2020Q2

REPORT INFORMATION
  Report Type: Spontaneous
  Country: DK (occurrence: DK)
  Receive Date: 20131028
  Receipt Date: 20200526
  Transmission Date: 20200714
  Serious: Yes (Other)
  Sender: FDA-Public Use
  Company Number: DK-PFIZER INC-2012265996

PATIENT
  Age: 33 Year
  Sex: Male
  Weight: 90 kg

DRUGS (15)
  1. CLOZAPIN HEXAL [Suspect]
     Active Substance: CLOZAPINE
     Indication: SCHIZOPHRENIA
     Dosage: 250 MG, 1X/DAY
     Route: 048
     Dates: start: 20170215, end: 20170914
  2. DELEPSINE [Suspect]
     Active Substance: VALPROATE SODIUM
     Indication: MOOD SWINGS
  3. RISPERDAL [Suspect]
     Active Substance: RISPERIDONE
     Indication: SCHIZOPHRENIA
     Dosage: UNK
     Dates: end: 2013
  4. CLOZAPIN HEXAL [Suspect]
     Active Substance: CLOZAPINE
     Indication: PSYCHOTIC DISORDER
     Dosage: 350 MG, UNK (150-350 MG)
     Route: 048
  5. DELEPSINE [Suspect]
     Active Substance: VALPROATE SODIUM
     Indication: MANIA
     Dosage: 2.5 ML IN THE MORNING AND 4 ML IN THE EVENING
     Route: 048
     Dates: start: 20150717
  6. ZIPRASIDONE HCL [Suspect]
     Active Substance: ZIPRASIDONE HYDROCHLORIDE
     Indication: MENTAL DISORDER
     Dosage: 20 MG, UNK
     Dates: start: 20150717
  7. ZYPREXA [Suspect]
     Active Substance: OLANZAPINE
     Dosage: UNK
     Route: 048
     Dates: start: 2010, end: 2013
  8. DELEPSINE RETARD [Suspect]
     Active Substance: VALPROATE SODIUM
     Indication: MOOD SWINGS
     Dosage: 500 MG IN THE MORNING, 1 G TO THE NIGHT
     Route: 048
     Dates: start: 20150202, end: 20170614
  9. ZELDOX [Suspect]
     Active Substance: ZIPRASIDONE
     Indication: MENTAL DISORDER
     Dosage: 20 MG, UNK
     Route: 048
     Dates: start: 2010, end: 2013
  10. LEPONEX [Suspect]
     Active Substance: CLOZAPINE
     Indication: SCHIZOPHRENIA
     Dosage: UNK
     Route: 048
  11. ESCITALOPRAM [Concomitant]
     Active Substance: ESCITALOPRAM OXALATE
     Dosage: UNK
     Route: 048
  12. RISPERDAL [Suspect]
     Active Substance: RISPERIDONE
     Indication: MANIA
     Dosage: UNK
     Dates: start: 2003, end: 2006
  13. SEROQUEL [Suspect]
     Active Substance: QUETIAPINE FUMARATE
     Indication: MENTAL DISORDER
     Dosage: 500 MG, UNK
     Route: 048
     Dates: start: 20050310
  14. CLOZAPIN HEXAL [Suspect]
     Active Substance: CLOZAPINE
     Dosage: 200 MG, 1X/DAY
     Route: 048
     Dates: start: 20170914
  15. ABILIFY [Concomitant]
     Active Substance: ARIPIPRAZOLE
     Dosage: UNK
     Dates: start: 2014

REACTIONS (10)
  - Hypogonadism male [Not Recovered/Not Resolved]
  - Gender dysphoria [Not Recovered/Not Resolved]
  - Erectile dysfunction [Not Recovered/Not Resolved]
  - Sperm concentration decreased [Not Recovered/Not Resolved]
  - Infertility [Not Recovered/Not Resolved]
  - Hyperprolactinaemia [Not Recovered/Not Resolved]
  - Homosexuality [Not Recovered/Not Resolved]
  - Feminisation acquired [Not Recovered/Not Resolved]
  - Testicular atrophy [Not Recovered/Not Resolved]
  - Hormone level abnormal [Not Recovered/Not Resolved]

NARRATIVE: CASE EVENT DATE: 20160717
